FAERS Safety Report 6176286-2 (Version None)
Quarter: 2009Q2

REPORT INFORMATION
  Report Type: 
  Country: None (occurrence: None)
  Receive Date: 20090501
  Receipt Date: 20081224
  Transmission Date: 20091009
  Serious: Yes (Death, Hospitalization)
  Sender: FDA-Public Use
  Company Number: GB-ROCHE-605260

PATIENT
  Age: 36 Year
  Sex: Female

DRUGS (7)
  1. MYCOPHENOLATE MOFETIL [Suspect]
     Indication: IMMUNOSUPPRESSION
     Route: 065
  2. AZATHIOPRINE [Suspect]
     Indication: IMMUNOSUPPRESSION
     Dosage: DOSE: 100MG, 2 /1DAYS. DRUG WITHDRAWN. DOSE REPORTED TWICE
     Route: 065
     Dates: end: 20050601
  3. CYCLOSPORINE [Suspect]
     Indication: IMMUNOSUPPRESSION
     Route: 065
  4. PREDNISOLONE [Suspect]
     Indication: IMMUNOSUPPRESSION
     Dosage: DOSE: 60MG, 1DAYS
     Route: 065
  5. THALIDOMIDE [Suspect]
     Route: 065
     Dates: start: 20061015
  6. ALEMTUZUMAB [Suspect]
     Indication: DRUG USE FOR UNKNOWN INDICATION
     Route: 065
  7. INTERFERON ALFA-2A [Concomitant]
     Dates: start: 19960101

REACTIONS (12)
  - ACUTE MYELOID LEUKAEMIA [None]
  - ANTINUCLEAR ANTIBODY POSITIVE [None]
  - ASPIRATION BONE MARROW ABNORMAL [None]
  - FIBROSIS [None]
  - MICROANGIOPATHY [None]
  - MYELODYSPLASTIC SYNDROME [None]
  - MYELOFIBROSIS [None]
  - PANCYTOPENIA [None]
  - PLATELET COUNT ABNORMAL [None]
  - PYREXIA [None]
  - RED BLOOD CELL ABNORMALITY [None]
  - RHEUMATOID FACTOR POSITIVE [None]
